FAERS Safety Report 5070165-X (Version None)
Quarter: 2006Q3

REPORT INFORMATION
  Report Type: 
  Country: None (occurrence: None)
  Receive Date: 20060802
  Receipt Date: 20060802
  Transmission Date: 20061208
  Serious: Yes (Hospitalization)
  Sender: FDA-Public Use
  Company Number: None

PATIENT
  Sex: Male

DRUGS (6)
  1. TEMOZOLOMIDE 200MG/M2 ON DAY 1; 25MG/M2 DAYS 2 - 5 F [Suspect]
     Indication: GLIOBLASTOMA
     Dosage: PO 360 MG (DAY1) 45MG (
     Route: 048
     Dates: start: 20060619, end: 20060623
  2. 06BG 120MG/M2 BOLUS 1 HR INFUSION X 3 OVER 5 DAYS ; 0 [Suspect]
     Indication: GLIOBLASTOMA
     Dosage: IV 215 MG BOLUS, 54 MG CO
     Route: 042
     Dates: start: 20060619, end: 20060623
  3. ADVAIR DISCUS 50/250 [Concomitant]
  4. DECADRON [Concomitant]
  5. PREVACID [Concomitant]
  6. TEGRETOL [Concomitant]

REACTIONS (2)
  - DISEASE PROGRESSION [None]
  - PANCYTOPENIA [None]
